FAERS Safety Report 26145278 (Version 1)
Quarter: 2025Q4

REPORT INFORMATION
  Report Type: Spontaneous
  Country: US (occurrence: US)
  Receive Date: 20251211
  Receipt Date: 20251211
  Transmission Date: 20260117
  Serious: Yes (Other)
  Sender: CELLTRION
  Company Number: US-CELLTRION INC.-2025US005021

PATIENT

DRUGS (2)
  1. TRUXIMA [Suspect]
     Active Substance: RITUXIMAB-ABBS
     Indication: Non-Hodgkin^s lymphoma
     Dosage: UNK (HE HAS HAD 5 OF THESE MONTHLY INFUSIONS TO DATE, WITH HIS FINAL (AND 6TH INFUSION) PLANNED FOR
  2. BENDEKA [Suspect]
     Active Substance: BENDAMUSTINE HYDROCHLORIDE
     Indication: Non-Hodgkin^s lymphoma
     Dosage: UNK (THEY ADD A LITTLE BIT (OF BENDAMUSTINE) WITH THE RITUXIMAB (ON THE FIRST DAY) AND THE SECOND DA

REACTIONS (3)
  - Chills [Not Recovered/Not Resolved]
  - Skin mass [Unknown]
  - Pruritus [Not Recovered/Not Resolved]
